FAERS Safety Report 8289682-4 (Version None)
Quarter: 2012Q2

REPORT INFORMATION
  Report Type: 
  Country: None (occurrence: None)
  Receive Date: 20120417
  Receipt Date: 20120403
  Transmission Date: 20120825
  Serious: Yes (Hospitalization)
  Sender: FDA-Public Use
  Company Number: GB-TEVA-333215ISR

PATIENT
  Sex: Female

DRUGS (1)
  1. COPAXONE [Suspect]
     Dosage: 20 MILLIGRAM;
     Route: 058
     Dates: start: 20100301, end: 20120325

REACTIONS (9)
  - DYSSTASIA [None]
  - ERYTHEMA [None]
  - CHILLS [None]
  - PAIN [None]
  - DYSPNOEA [None]
  - INJECTION SITE HAEMATOMA [None]
  - HYPERTENSION [None]
  - FEELING DRUNK [None]
  - FEELING COLD [None]
